FAERS Safety Report 9413042 (Version 1)
Quarter: 2013Q3

REPORT INFORMATION
  Report Type: Spontaneous
  Country: JP (occurrence: JP)
  Receive Date: 20130722
  Receipt Date: 20130722
  Transmission Date: 20140515
  Serious: Yes (Hospitalization)
  Sender: FDA-Public Use
  Company Number: JP-GLAXOSMITHKLINE-B0888490A

PATIENT
  Age: 75 Year
  Sex: Female
  Weight: 58 kg

DRUGS (4)
  1. HYCAMTIN [Suspect]
     Indication: OVARIAN CANCER RECURRENT
     Dosage: 1MGM2 PER DAY
     Route: 042
     Dates: start: 20120913, end: 20120917
  2. GRANISETRON [Concomitant]
     Indication: VOMITING
     Dosage: 3MG PER DAY
     Route: 065
     Dates: start: 20120913, end: 20120917
  3. PACLITAXEL [Concomitant]
     Indication: OVARIAN EPITHELIAL CANCER
     Dates: start: 20120710
  4. CARBOPLATIN [Concomitant]
     Indication: OVARIAN CANCER RECURRENT
     Dates: start: 20120710

REACTIONS (6)
  - Agranulocytosis [Recovered/Resolved]
  - White blood cell count decreased [Recovered/Resolved]
  - Red blood cell count decreased [Recovering/Resolving]
  - Anaemia [Recovering/Resolving]
  - Platelet count decreased [Recovered/Resolved]
  - Febrile neutropenia [Recovered/Resolved]
